FAERS Safety Report 7511332-2 (Version None)
Quarter: 2011Q2

REPORT INFORMATION
  Report Type: 
  Country: None (occurrence: None)
  Receive Date: 20110531
  Receipt Date: 20110513
  Transmission Date: 20111010
  Serious: Yes (Hospitalization)
  Sender: FDA-Public Use
  Company Number: US-BAYER-201033975NA

PATIENT
  Age: 22 Year
  Sex: Female
  Weight: 51.247 kg

DRUGS (6)
  1. PRILOSEC [Concomitant]
  2. EXCEDRIN (MIGRAINE) [Concomitant]
     Indication: MIGRAINE
     Dosage: UNK UNK, PRN
     Route: 048
  3. IBUPROFEN [Concomitant]
     Dosage: UNK UNK, PRN
  4. YAZ [Suspect]
     Indication: CONTRACEPTION
     Dosage: UNK UNK, UNK
     Dates: start: 20080301, end: 20090901
  5. YAZ [Suspect]
     Indication: PREMENSTRUAL SYNDROME
  6. NAPROXEN [Concomitant]
     Dosage: UNK UNK, PRN

REACTIONS (3)
  - ABDOMINAL PAIN UPPER [None]
  - CHOLECYSTITIS INFECTIVE [None]
  - CHOLELITHIASIS [None]
